FAERS Safety Report 25205699 (Version 1)
Quarter: 2025Q2

REPORT INFORMATION
  Report Type: Spontaneous
  Country: US (occurrence: US)
  Receive Date: 20250417
  Receipt Date: 20250417
  Transmission Date: 20250717
  Serious: Yes (Other)
  Sender: COOPERSURGICAL
  Company Number: US-COOPERSURGICAL, INC.-2025CPS002803

PATIENT
  Age: 29 Year
  Sex: Female
  Weight: 58.957 kg

DRUGS (1)
  1. PARAGARD T 380A [Suspect]
     Active Substance: COPPER
     Indication: Contraception
     Route: 015
     Dates: start: 20150609

REACTIONS (18)
  - Hydrometra [Recovered/Resolved]
  - Reproductive complication associated with device [Not Recovered/Not Resolved]
  - Infertility female [Not Recovered/Not Resolved]
  - Cervical dysplasia [Unknown]
  - Device breakage [Recovered/Resolved]
  - Foreign body in reproductive tract [Recovered/Resolved]
  - Complication of device removal [Recovered/Resolved]
  - Embedded device [Recovered/Resolved]
  - Uterine perforation [Recovered/Resolved]
  - Abdominal pain upper [Not Recovered/Not Resolved]
  - Endometriosis [Not Recovered/Not Resolved]
  - Pelvic fluid collection [Recovered/Resolved]
  - Pain in extremity [Recovered/Resolved]
  - Dysmenorrhoea [Unknown]
  - Muscle spasms [Unknown]
  - Vaginal infection [Recovered/Resolved]
  - Vaginal discharge [Recovered/Resolved]
  - Pelvic pain [Not Recovered/Not Resolved]

NARRATIVE: CASE EVENT DATE: 20170609
